FAERS Safety Report 4844774-4 (Version None)
Quarter: 2005Q4

REPORT INFORMATION
  Report Type: 
  Country: None (occurrence: None)
  Receive Date: 20051125
  Receipt Date: 20051110
  Transmission Date: 20060501
  Serious: Yes (Other)
  Sender: FDA-Public Use
  Company Number: JP200511001149

PATIENT
  Age: 71 Year
  Sex: Female

DRUGS (3)
  1. EVISTA [Suspect]
     Indication: OSTEOPOROSIS
     Dosage: 60 MG, DAILY (1/D), ORAL
     Route: 048
     Dates: start: 20051101
  2. METHYCOBAL (MECOBALAMIN) TABLET [Concomitant]
  3. ACTONEL [Concomitant]

REACTIONS (1)
  - RETINAL HAEMORRHAGE [None]
